FAERS Safety Report 7731149-3 (Version None)
Quarter: 2011Q3

REPORT INFORMATION
  Report Type: 
  Country: None (occurrence: None)
  Receive Date: 20110906
  Receipt Date: 20110906
  Transmission Date: 20111222
  Serious: Yes (Life-Threatening, Other)
  Sender: FDA-Public Use
  Company Number: None

PATIENT
  Age: 63 Year
  Sex: Female
  Weight: 58.059 kg

DRUGS (3)
  1. AVELOX [Concomitant]
     Indication: SHOCK
     Dosage: 500 MG?
     Route: 048
     Dates: start: 20090713, end: 20090714
  2. LEVAQUIN [Suspect]
     Indication: BLOOD URINE PRESENT
     Dosage: 500 MG?
     Route: 048
     Dates: start: 20080504, end: 20080512
  3. LEVAQUIN [Suspect]
     Indication: BLOOD PRESSURE
     Dosage: 500 MG?
     Route: 048
     Dates: start: 20080504, end: 20080512

REACTIONS (3)
  - ANAPHYLACTIC SHOCK [None]
  - DRUG HYPERSENSITIVITY [None]
  - FALL [None]
